FAERS Safety Report 16329691 (Version 1)
Quarter: 2019Q2

REPORT INFORMATION
  Report Type: Other
  Country: AU (occurrence: AU)
  Receive Date: 20190520
  Receipt Date: 20190520
  Transmission Date: 20190711
  Serious: Yes (Other)
  Sender: FDA-Public Use
  Company Number: AU-VISTAPHARM, INC.-VER201905-000228

PATIENT
  Age: 24 Year
  Sex: Male

DRUGS (11)
  1. CLOZAPINE. [Suspect]
     Active Substance: CLOZAPINE
     Indication: SCHIZOPHRENIA
     Dosage: 700 MG (50 MG MIDI [MID DAY], 650 MG NOCTE [NIGHT])
  2. HALOPERIDOL DECANOATE. [Concomitant]
     Active Substance: HALOPERIDOL DECANOATE
     Dosage: THREE 10 MG DOSES
     Route: 048
  3. CLOZAPINE. [Suspect]
     Active Substance: CLOZAPINE
     Dosage: 350 MG
  4. HALOPERIDOL DECANOATE. [Concomitant]
     Active Substance: HALOPERIDOL DECANOATE
     Indication: PRODUCT USED FOR UNKNOWN INDICATION
     Dosage: 200 MG (2 DOSES)
  5. CLOZAPINE. [Suspect]
     Active Substance: CLOZAPINE
     Dosage: 700 MG (50 MG MIDI [MID DAY], 650 MG NOCTE [NIGHT])
  6. VALPROIC ACID. [Suspect]
     Active Substance: VALPROIC ACID
     Indication: SEIZURE PROPHYLAXIS
     Dosage: 1000 MG
  7. VALPROIC ACID. [Suspect]
     Active Substance: VALPROIC ACID
     Dosage: 1500 MG
  8. VALPROIC ACID. [Suspect]
     Active Substance: VALPROIC ACID
     Dosage: 2000 MG
  9. CLOZAPINE. [Suspect]
     Active Substance: CLOZAPINE
     Dosage: 750 MG (100 MG MIDI [MID DAY], 650 MG NOCTE [NIGHT])
  10. CLOZAPINE. [Suspect]
     Active Substance: CLOZAPINE
     Dosage: 650 MG
  11. CLOZAPINE. [Suspect]
     Active Substance: CLOZAPINE
     Dosage: 425 MG

REACTIONS (2)
  - Potentiating drug interaction [Unknown]
  - Drug interaction [Unknown]
